FAERS Safety Report 11750535 (Version 4)
Quarter: 2016Q2

REPORT INFORMATION
  Report Type: Spontaneous
  Country: US (occurrence: US)
  Receive Date: 20151118
  Receipt Date: 20160513
  Transmission Date: 20160815
  Serious: No
  Sender: FDA-Public Use
  Company Number: US-ACTELION PHARMACEUTICALS US, INC.-A-US2015-127422

PATIENT
  Age: 60 Year
  Sex: Female

DRUGS (5)
  1. TRIAMCINOLONE ACETONIDE. [Concomitant]
     Active Substance: TRIAMCINOLONE ACETONIDE
  2. VALCHLOR [Suspect]
     Active Substance: MECHLORETHAMINE
     Indication: MYCOSIS FUNGOIDES
     Dosage: UNK UNK, QD
     Route: 061
     Dates: start: 20150506
  3. VALCHLOR [Suspect]
     Active Substance: MECHLORETHAMINE
     Dosage: 3 X WEEK
     Route: 061
     Dates: start: 20160113
  4. CORTICOSTEROIDS [Concomitant]
     Active Substance: CORTICOSTEROID NOS
     Dosage: UNK
     Route: 061
     Dates: start: 20151008
  5. OXSORALEN [Concomitant]
     Active Substance: METHOXSALEN
     Dosage: 30 MG, 2-3X WEEKLY

REACTIONS (7)
  - Skin burning sensation [Unknown]
  - Erythema [Unknown]
  - Dermatitis contact [Recovered/Resolved]
  - Pruritus [Unknown]
  - Dermatitis [Recovered/Resolved]
  - Pain of skin [Unknown]
  - Dry skin [Unknown]

NARRATIVE: CASE EVENT DATE: 20160113
